FAERS Safety Report 21880636 (Version 1)
Quarter: 2023Q1

REPORT INFORMATION
  Report Type: Report from Study
  Country: IT (occurrence: IT)
  Receive Date: 20230118
  Receipt Date: 20230118
  Transmission Date: 20230418
  Serious: Yes (Other)
  Sender: FDA-Public Use
  Company Number: None

PATIENT
  Age: 73 Year
  Sex: Female

DRUGS (6)
  1. GLATIRAMER [Suspect]
     Active Substance: GLATIRAMER
     Indication: Relapsing multiple sclerosis
     Dosage: 3 TIMES A WEEK (40 MG/ML )
     Route: 058
  2. COPAXONE [Suspect]
     Active Substance: GLATIRAMER ACETATE
     Indication: Multiple sclerosis
     Dosage: 40 MG/ML 3 TIMES A WEEK
     Route: 058
     Dates: start: 20170112, end: 20190724
  3. ATORVASTATIN [Concomitant]
     Active Substance: ATORVASTATIN
     Dosage: NOT KNOWN
     Route: 048
  4. AMANTADINE HYDROCHLORIDE [Concomitant]
     Active Substance: AMANTADINE HYDROCHLORIDE
     Indication: Parkinsonism
     Dosage: 2 TABLETS100 MG TABLETS PER DAY
     Route: 048
  5. Tavor [Concomitant]
     Dosage: TAVOR 1 MG IN EVENING
     Route: 048
  6. OSSIBUTININA CLORIDRATO MYLAN GENERICS [Concomitant]
     Indication: Micturition urgency
     Dosage: 5 MG TWICE DAILY
     Route: 048

REACTIONS (1)
  - Breast mass [Unknown]

NARRATIVE: CASE EVENT DATE: 20221108
